FAERS Safety Report 16066210 (Version 2)
Quarter: 2019Q2

REPORT INFORMATION
  Report Type: Spontaneous
  Country: US (occurrence: US)
  Receive Date: 20190313
  Receipt Date: 20190412
  Transmission Date: 20190711
  Serious: No
  Sender: FDA-Public Use
  Company Number: US-ASTRAZENECA-2019SE25464

PATIENT
  Age: 24072 Day
  Sex: Male

DRUGS (2)
  1. BYDUREON BCISE [Suspect]
     Active Substance: EXENATIDE
     Route: 065
  2. BYDUREON [Suspect]
     Active Substance: EXENATIDE
     Route: 065

REACTIONS (7)
  - Injection site haemorrhage [Unknown]
  - Device issue [Unknown]
  - Product dose omission [Unknown]
  - Device difficult to use [Unknown]
  - Blood glucose increased [Unknown]
  - Injection site extravasation [Unknown]
  - Circumstance or information capable of leading to medication error [Unknown]

NARRATIVE: CASE EVENT DATE: 20190209
